FAERS Safety Report 6149231-3 (Version None)
Quarter: 2009Q2

REPORT INFORMATION
  Report Type: 
  Country: None (occurrence: None)
  Receive Date: 20090406
  Receipt Date: 20090406
  Transmission Date: 20091009
  Serious: Yes (Other)
  Sender: FDA-Public Use
  Company Number: None

PATIENT
  Age: 45 Year
  Sex: Male
  Weight: 90 kg

DRUGS (2)
  1. LEVAQUIN [Suspect]
     Indication: EAR INFECTION
     Dosage: 1 TAB PER DAY PO
     Route: 048
     Dates: start: 20090105, end: 20090111
  2. LEVAQUIN [Suspect]
     Indication: EAR INFECTION
     Dosage: 1 TAB PER DAY PO
     Route: 048
     Dates: start: 20090112, end: 20090119

REACTIONS (1)
  - TENDONITIS [None]
